FAERS Safety Report 9665654 (Version 2)
Quarter: 2013Q4

REPORT INFORMATION
  Report Type: Report from Study
  Country: JP (occurrence: JP)
  Receive Date: 20131104
  Receipt Date: 20131104
  Transmission Date: 20140711
  Serious: Yes (Hospitalization)
  Sender: FDA-Public Use
  Company Number: PHHY2013JP038373

PATIENT
  Age: 27 Year
  Sex: Female

DRUGS (7)
  1. FTY 720 [Suspect]
     Indication: MULTIPLE SCLEROSIS
     Dosage: 0.5 MG, QD
     Route: 048
     Dates: start: 20120507
  2. DEPAKENE [Concomitant]
     Dosage: 400 MG, UNK
     Route: 048
     Dates: start: 20120418, end: 20130423
  3. TAKEPRON [Concomitant]
     Dosage: 15 MG, UNK
     Route: 048
     Dates: start: 20120426, end: 20121127
  4. TRYPTANOL                               /AUS/ [Concomitant]
     Dosage: 10 MG, UNK
     Route: 048
     Dates: start: 20120725, end: 20130423
  5. RIVOTRIL [Concomitant]
     Dosage: 0.5 MG, UNK
     Route: 048
     Dates: start: 20121017, end: 20121127
  6. DEPAS [Concomitant]
     Dosage: 0.5 MG, PRN
     Route: 048
     Dates: end: 20121127
  7. LOXONIN [Concomitant]
     Dosage: 60 MG, UNK
     Route: 048

REACTIONS (3)
  - Nausea [Recovering/Resolving]
  - Vomiting [Recovering/Resolving]
  - Nasopharyngitis [Recovered/Resolved]
